FAERS Safety Report 9012732 (Version 2)
Quarter: 2013Q1

REPORT INFORMATION
  Report Type: Spontaneous
  Country: US (occurrence: US)
  Receive Date: 20130114
  Receipt Date: 20130215
  Transmission Date: 20140127
  Serious: No
  Sender: FDA-Public Use
  Company Number: US-PFIZER INC-2013015413

PATIENT
  Sex: Female
  Weight: 77.55 kg

DRUGS (4)
  1. EFFEXOR [Suspect]
     Indication: PANIC ATTACK
     Dosage: 75 MG, DAILY
  2. EFFEXOR [Suspect]
     Indication: NERVOUS SYSTEM DISORDER
  3. ATENOLOL [Concomitant]
     Indication: HYPERTENSION
     Dosage: 50 MG, 2X/DAY
  4. LISINOPRIL [Concomitant]
     Indication: HYPERTENSION
     Dosage: 10 MG, DAILY

REACTIONS (3)
  - Panic attack [Recovering/Resolving]
  - Nervous system disorder [Recovering/Resolving]
  - Off label use [Unknown]
